FAERS Safety Report 23479150 (Version 2)
Quarter: 2024Q1

REPORT INFORMATION
  Report Type: Report from Study
  Country: US (occurrence: US)
  Receive Date: 20240205
  Receipt Date: 20240307
  Transmission Date: 20240410
  Serious: Yes (Hospitalization)
  Sender: FDA-Public Use
  Company Number: US-JAZZ PHARMACEUTICALS-2024-US-001950

PATIENT
  Age: 1 Year
  Sex: Male

DRUGS (3)
  1. EPIDIOLEX [Suspect]
     Active Substance: CANNABIDIOL
     Indication: Seizure
     Dosage: 0.5 MILLILITER, BID
     Route: 048
     Dates: start: 202311
  2. SYNAGIS [Concomitant]
     Active Substance: PALIVIZUMAB
     Indication: Respiration abnormal
     Dosage: 100 MG/ML
  3. SYNAGIS [Concomitant]
     Active Substance: PALIVIZUMAB
     Dosage: 50MG/0.5ML

REACTIONS (2)
  - Hospitalisation [Unknown]
  - Hospitalisation [Unknown]

NARRATIVE: CASE EVENT DATE: 20240104
